FAERS Safety Report 8326110-4 (Version None)
Quarter: 2012Q2

REPORT INFORMATION
  Report Type: 
  Country: None (occurrence: None)
  Receive Date: 20120501
  Receipt Date: 20120425
  Transmission Date: 20120825
  Serious: Yes (Hospitalization, Disabling)
  Sender: FDA-Public Use
  Company Number: US-CELGENEUS-163-21880-12040167

PATIENT
  Sex: Male
  Weight: 83.536 kg

DRUGS (21)
  1. DEXAMETHASONE [Concomitant]
     Dosage: 20 MILLIGRAM
     Route: 065
  2. NITROGLYCERIN [Concomitant]
     Route: 065
  3. ATROVENT [Concomitant]
     Route: 065
  4. RISPERIDONE [Concomitant]
     Route: 065
  5. MELATONIN [Concomitant]
     Route: 065
  6. STOOL SOFTENERS [Concomitant]
     Indication: CONSTIPATION
     Route: 065
  7. ASPIRIN [Concomitant]
     Route: 065
  8. VITAMIN D [Concomitant]
     Route: 065
  9. ISOSORBIDE MONONITRATE [Concomitant]
     Route: 065
  10. COUMADIN [Concomitant]
     Indication: ATRIAL FIBRILLATION
     Route: 065
     Dates: start: 20120301, end: 20090801
  11. ZOCOR [Concomitant]
     Route: 065
  12. DIGOXIN [Concomitant]
     Route: 065
  13. ANDROGEL [Concomitant]
     Route: 065
  14. REVLIMID [Suspect]
     Indication: MULTIPLE MYELOMA
     Dosage: 10 MILLIGRAM
     Route: 048
     Dates: start: 20120304
  15. RANEXA [Concomitant]
     Route: 065
  16. TOPROL-XL [Concomitant]
     Route: 065
  17. DULCOLAX [Concomitant]
     Indication: CONSTIPATION
     Route: 065
  18. MIRALAX [Concomitant]
     Indication: CONSTIPATION
     Route: 065
  19. MYCOLOG [Concomitant]
     Route: 065
  20. PRILOSEC [Concomitant]
     Route: 065
  21. SINEMET [Concomitant]
     Indication: DEMENTIA
     Route: 065

REACTIONS (1)
  - PRESYNCOPE [None]
